FAERS Safety Report 4374943-1 (Version None)
Quarter: 2004Q2

REPORT INFORMATION
  Report Type: 
  Country: None (occurrence: None)
  Receive Date: 20040604
  Receipt Date: 20040520
  Transmission Date: 20050107
  Serious: Yes (Hospitalization)
  Sender: FDA-Public Use
  Company Number: 2004SE02957

PATIENT
  Age: 74 Year
  Sex: Male

DRUGS (3)
  1. CASODEX [Suspect]
     Indication: PROSTATIC ADENOMA
     Dosage: 50 MG DAILY PO
     Route: 048
     Dates: start: 20031215, end: 20040506
  2. DECDAPEPTYL                /SCH/ [Suspect]
     Indication: PROSTATIC ADENOMA
     Dosage: 11.25 MG Q3MO IM
     Route: 030
     Dates: start: 20031215, end: 20040401
  3. PROPAPHENONE [Concomitant]

REACTIONS (7)
  - ARRHYTHMIA [None]
  - ATRIOVENTRICULAR BLOCK FIRST DEGREE [None]
  - BUNDLE BRANCH BLOCK LEFT [None]
  - FALL [None]
  - LOSS OF CONSCIOUSNESS [None]
  - SYNCOPE [None]
  - VENTRICULAR TACHYCARDIA [None]
